FAERS Safety Report 7761276-6 (Version None)
Quarter: 2011Q3

REPORT INFORMATION
  Report Type: 
  Country: None (occurrence: None)
  Receive Date: 20110920
  Receipt Date: 20110913
  Transmission Date: 20111222
  Serious: Yes (Other)
  Sender: FDA-Public Use
  Company Number: US-JNJFOC-20100805758

PATIENT
  Sex: Female
  Weight: 92.99 kg

DRUGS (2)
  1. LEVAQUIN [Suspect]
     Indication: BRONCHITIS
     Route: 048
     Dates: start: 20090501, end: 20090601
  2. LEVAQUIN [Suspect]
     Indication: SINUSITIS
     Route: 048
     Dates: start: 20090501, end: 20090601

REACTIONS (5)
  - TENDON RUPTURE [None]
  - NECK PAIN [None]
  - ROTATOR CUFF SYNDROME [None]
  - CHONDROPATHY [None]
  - PAIN IN EXTREMITY [None]
